FAERS Safety Report 18581074 (Version 1)
Quarter: 2020Q4

REPORT INFORMATION
  Report Type: Spontaneous
  Country: US (occurrence: US)
  Receive Date: 20201204
  Receipt Date: 20201204
  Transmission Date: 20210114
  Serious: Yes (Hospitalization, Other)
  Sender: FDA-Public Use
  Company Number: US-HIKMA PHARMACEUTICALS USA INC.-US-H14001-20-52738

PATIENT
  Age: 57 Year
  Sex: Male

DRUGS (4)
  1. PREDNISONE. [Suspect]
     Active Substance: PREDNISONE
     Indication: IMMUNOSUPPRESSANT DRUG THERAPY
     Route: 065
  2. MYCOPHENOLATE MOFETIL. [Suspect]
     Active Substance: MYCOPHENOLATE MOFETIL
     Indication: IMMUNOSUPPRESSANT DRUG THERAPY
     Route: 065
  3. CICLOSPORIN [Suspect]
     Active Substance: CYCLOSPORINE
     Indication: IMMUNOSUPPRESSANT DRUG THERAPY
     Dosage: TROUGH LEVEL APPROXIMATELY 75-100 NG/ML
     Route: 065
  4. CICLOSPORIN [Suspect]
     Active Substance: CYCLOSPORINE
     Dosage: TROUGH LEVEL APPROXIMATELY 75-100 NG/ML
     Route: 065

REACTIONS (7)
  - Neutropenia [Unknown]
  - Renal tubular necrosis [Recovering/Resolving]
  - Clostridium difficile infection [Recovering/Resolving]
  - Post transplant lymphoproliferative disorder [Unknown]
  - Disseminated varicella zoster virus infection [Unknown]
  - Acute kidney injury [Recovering/Resolving]
  - Sepsis [Unknown]
